FAERS Safety Report 5855763-5 (Version None)
Quarter: 2008Q3

REPORT INFORMATION
  Report Type: 
  Country: None (occurrence: None)
  Receive Date: 20080825
  Receipt Date: 20080819
  Transmission Date: 20090109
  Serious: Yes (Death, Hospitalization, Disabling)
  Sender: FDA-Public Use
  Company Number: US-AVENTIS-US90-06159

PATIENT
  Sex: Female

DRUGS (26)
  1. DOCETAXEL [Suspect]
     Indication: BREAST CANCER
     Route: 042
     Dates: start: 19980901, end: 19981228
  2. DOXORUBICIN HCL [Suspect]
     Indication: BREAST CANCER
     Route: 042
     Dates: start: 19980901, end: 19981228
  3. CYCLOPHOSPHAMIDE [Suspect]
     Indication: BREAST CANCER
     Route: 042
     Dates: start: 19980901, end: 19981228
  4. GLUCOTROL [Concomitant]
  5. GLUCOPHAGE [Concomitant]
  6. TAMOXIFEN CITRATE [Concomitant]
  7. PAXIL [Concomitant]
     Dates: start: 19990501
  8. NEURONTIN [Concomitant]
  9. PROCARDIA [Concomitant]
  10. LIPITOR [Concomitant]
  11. GLUCOVANCE                         /01503701/ [Concomitant]
  12. LASIX [Concomitant]
  13. NITROGLYCERIN [Concomitant]
  14. ZANTAC [Concomitant]
  15. ASPIRIN [Concomitant]
  16. COREG [Concomitant]
  17. DIGOXIN [Concomitant]
  18. SPIRONOLACTONE [Concomitant]
  19. POTASSIUM CHLORIDE [Concomitant]
  20. HUMALOG [Concomitant]
  21. LANTUS [Concomitant]
  22. LEVOTHYROXINE [Concomitant]
  23. ENALAPRIL MALEATE [Concomitant]
  24. PROZAC [Concomitant]
  25. MIACALCIN [Concomitant]
  26. NORCO [Concomitant]

REACTIONS (14)
  - ARTERIOSCLEROSIS CORONARY ARTERY [None]
  - BUNDLE BRANCH BLOCK LEFT [None]
  - CARDIAC FAILURE [None]
  - CARDIAC FAILURE CONGESTIVE [None]
  - CARDIOMEGALY [None]
  - CORONARY ARTERY OCCLUSION [None]
  - DIABETES MELLITUS [None]
  - DIARRHOEA [None]
  - HEPATIC FUNCTION ABNORMAL [None]
  - LEFT VENTRICULAR FAILURE [None]
  - PNEUMONIA [None]
  - RENAL FAILURE ACUTE [None]
  - THERAPEUTIC AGENT TOXICITY [None]
  - URINARY TRACT INFECTION [None]
